FAERS Safety Report 5910797-7 (Version None)
Quarter: 2008Q4

REPORT INFORMATION
  Report Type: 
  Country: None (occurrence: None)
  Receive Date: 20081007
  Receipt Date: 20080509
  Transmission Date: 20090506
  Serious: No
  Sender: FDA-Public Use
  Company Number: US-ASTRAZENECA-2008UW09600

PATIENT
  Age: 62 Year
  Sex: Female
  Weight: 90.7 kg

DRUGS (12)
  1. ARIMIDEX [Suspect]
     Indication: BREAST CANCER FEMALE
     Route: 048
  2. SYNTHROID [Concomitant]
  3. LYRICA [Concomitant]
  4. OXYCODONE HCL [Concomitant]
  5. WELLBUTRIN XL [Concomitant]
  6. CYMBALTA [Concomitant]
  7. PROTONIX [Concomitant]
  8. PHENERGAN HCL [Concomitant]
  9. XANAX [Concomitant]
  10. TRAZODONE HCL [Concomitant]
  11. CALTRATE D [Concomitant]
  12. ZANAFLEX [Concomitant]

REACTIONS (1)
  - BONE DENSITY DECREASED [None]
